FAERS Safety Report 6979104-5 (Version None)
Quarter: 2010Q3

REPORT INFORMATION
  Report Type: 
  Country: None (occurrence: None)
  Receive Date: 20100913
  Receipt Date: 20100831
  Transmission Date: 20110219
  Serious: Yes (Other)
  Sender: FDA-Public Use
  Company Number: PHHY2010JP55450

PATIENT
  Age: 64 Year
  Sex: Male

DRUGS (1)
  1. TEGRETOL [Suspect]
     Dosage: 100 MG THREE TIMES DAILY AND 200 BEFORE GOING TO BED
     Route: 048

REACTIONS (2)
  - INFECTION [None]
  - PYREXIA [None]
